FAERS Safety Report 6296116-8 (Version None)
Quarter: 2009Q3

REPORT INFORMATION
  Report Type: 
  Country: None (occurrence: None)
  Receive Date: 20090731
  Receipt Date: 20090721
  Transmission Date: 20100115
  Serious: Yes (Hospitalization)
  Sender: FDA-Public Use
  Company Number: 1000007187

PATIENT
  Age: 40 Year
  Sex: Female

DRUGS (5)
  1. ESCITALOPRAM [Suspect]
     Dosage: 10 MG (10 MG, 1 IN  1 D),ORAL
     Route: 048
     Dates: start: 20090503, end: 20090510
  2. ESCITALOPRAM [Suspect]
     Dosage: 15 MG (15 MG,1 IN 1 D), ORAL
     Route: 048
     Dates: start: 20090511, end: 20090522
  3. CHAMPIX (TABLETS) [Suspect]
     Indication: SMOKING CESSATION THERAPY
     Dosage: 0.5 MG (0.5 MG, 1 IN 1 D),ORAL ; 1 MG (0.5 MG, 2 IN 1 D), ORAL
     Route: 048
     Dates: start: 20090503, end: 20090505
  4. CHAMPIX (TABLETS) [Suspect]
     Indication: SMOKING CESSATION THERAPY
     Dosage: 0.5 MG (0.5 MG, 1 IN 1 D),ORAL ; 1 MG (0.5 MG, 2 IN 1 D), ORAL
     Route: 048
     Dates: start: 20090506, end: 20090512
  5. CHAMPIX (TABLETS) [Suspect]
     Indication: SMOKING CESSATION THERAPY
     Dosage: 2 MG (1 MG, 2 IN 1 D, ORAL
     Route: 048
     Dates: start: 20090513, end: 20090522

REACTIONS (5)
  - ABDOMINAL PAIN [None]
  - ASCITES [None]
  - MUSCLE STRAIN [None]
  - OEDEMA PERIPHERAL [None]
  - OLIGURIA [None]
